FAERS Safety Report 8003023-9 (Version None)
Quarter: 2011Q4

REPORT INFORMATION
  Report Type: 
  Country: None (occurrence: None)
  Receive Date: 20111222
  Receipt Date: 20110914
  Transmission Date: 20120403
  Serious: No
  Sender: FDA-Public Use
  Company Number: US-GLAXOSMITHKLINE-A0944613A

PATIENT
  Age: 79 Year
  Sex: Male

DRUGS (4)
  1. AVODART [Suspect]
     Indication: BENIGN PROSTATIC HYPERPLASIA
     Dosage: 1CAP PER DAY
     Route: 048
     Dates: start: 20110720
  2. LIPITOR [Concomitant]
  3. XANAX [Concomitant]
  4. KLONOPIN [Concomitant]

REACTIONS (2)
  - BLOOD PRESSURE INCREASED [None]
  - ANXIETY [None]
